FAERS Safety Report 5814699-6 (Version None)
Quarter: 2008Q3

REPORT INFORMATION
  Report Type: 
  Country: None (occurrence: None)
  Receive Date: 20080718
  Receipt Date: 20080326
  Transmission Date: 20090109
  Serious: No
  Sender: FDA-Public Use
  Company Number: US-KINGPHARMUSA00001-K200800365

PATIENT

DRUGS (6)
  1. LEVOXYL [Suspect]
     Indication: THYROIDECTOMY
     Dosage: 137 MCG, QD
     Route: 048
     Dates: start: 20050101, end: 20060501
  2. LEVOXYL [Suspect]
     Dosage: 200 MCG, QD
     Route: 048
     Dates: start: 20060501, end: 20080101
  3. LEVOXYL [Suspect]
     Dosage: ALTERNATE 200 MCG WITH 250 MCG, QOD
     Route: 048
     Dates: start: 20080101
  4. ALTACE [Concomitant]
     Indication: HYPERTENSION
  5. WELCHOL [Concomitant]
     Indication: BLOOD CHOLESTEROL INCREASED
  6. TRICOR                             /00499301/ [Concomitant]
     Indication: BLOOD CHOLESTEROL INCREASED

REACTIONS (1)
  - BLOOD THYROID STIMULATING HORMONE INCREASED [None]
